FAERS Safety Report 7414948-7 (Version None)
Quarter: 2011Q2

REPORT INFORMATION
  Report Type: 
  Country: None (occurrence: None)
  Receive Date: 20110406
  Receipt Date: 20110404
  Transmission Date: 20111010
  Serious: Yes (Other)
  Sender: FDA-Public Use
  Company Number: 014932

PATIENT
  Sex: Male
  Weight: 115.5 kg

DRUGS (14)
  1. PROZAC /00724401/ [Concomitant]
  2. PLAQUENIL /00072603/ [Concomitant]
  3. MOTRIN [Concomitant]
  4. HYDROCHLOROTHIAZIDE [Concomitant]
  5. MULTI-VITAMINS [Concomitant]
  6. CERTOLIZUMAB PEGOL [Suspect]
     Indication: RHEUMATOID ARTHRITIS
     Dosage: (200 MG 1X/2 WEEKS SUBCUTANEOUS), (400 MG, 3 DOSES SUBCUTANEOUS), (200 MG, 1 DOSE SUBCUTANEOUS)
     Route: 058
     Dates: start: 20100518, end: 20100518
  7. CERTOLIZUMAB PEGOL [Suspect]
     Indication: RHEUMATOID ARTHRITIS
     Dosage: (200 MG 1X/2 WEEKS SUBCUTANEOUS), (400 MG, 3 DOSES SUBCUTANEOUS), (200 MG, 1 DOSE SUBCUTANEOUS)
     Route: 058
     Dates: start: 20100518, end: 20100727
  8. CERTOLIZUMAB PEGOL [Suspect]
     Indication: RHEUMATOID ARTHRITIS
     Dosage: (200 MG 1X/2 WEEKS SUBCUTANEOUS), (400 MG, 3 DOSES SUBCUTANEOUS), (200 MG, 1 DOSE SUBCUTANEOUS)
     Route: 058
     Dates: start: 20100406, end: 20100505
  9. VICODIN [Concomitant]
  10. PREDNISONE [Concomitant]
  11. METHOTREXATE [Concomitant]
  12. K-DUR [Concomitant]
  13. FISH OIL [Concomitant]
  14. VITAMINE C [Concomitant]

REACTIONS (11)
  - PAIN [None]
  - TREATMENT NONCOMPLIANCE [None]
  - BLOOD GLUCOSE INCREASED [None]
  - ACNE [None]
  - TOOTHACHE [None]
  - CELLULITIS [None]
  - BLOOD UREA NITROGEN/CREATININE RATIO INCREASED [None]
  - INSOMNIA [None]
  - CHEST WALL ABSCESS [None]
  - ARTHRALGIA [None]
  - PROTEUS TEST POSITIVE [None]
